FAERS Safety Report 7384267-6 (Version None)
Quarter: 2011Q1

REPORT INFORMATION
  Report Type: 
  Country: None (occurrence: None)
  Receive Date: 20110330
  Receipt Date: 20110124
  Transmission Date: 20110831
  Serious: Yes (Life-Threatening, Hospitalization)
  Sender: FDA-Public Use
  Company Number: FR-MERCK-1101FRA00075

PATIENT
  Age: 70 Year
  Sex: Female
  Weight: 89 kg

DRUGS (14)
  1. JANUMET [Suspect]
     Route: 048
     Dates: start: 20100101, end: 20101101
  2. PIOGLITAZONE HYDROCHLORIDE [Concomitant]
     Route: 048
     Dates: start: 20100811, end: 20101118
  3. PIOGLITAZONE HYDROCHLORIDE [Concomitant]
     Route: 048
     Dates: start: 20101119
  4. DIACEREIN [Suspect]
     Indication: OSTEOARTHRITIS
     Route: 048
     Dates: start: 20060301
  5. FUROSEMIDE [Concomitant]
     Indication: HYPERTENSION
     Route: 048
  6. AMLODIPINE [Suspect]
     Indication: HYPERTENSION
     Route: 048
     Dates: start: 20061201, end: 20101118
  7. ROSUVASTATIN CALCIUM [Suspect]
     Indication: HYPERCHOLESTEROLAEMIA
     Route: 048
     Dates: start: 20091014
  8. JANUMET [Suspect]
     Indication: TYPE 2 DIABETES MELLITUS
     Route: 048
     Dates: start: 20091014, end: 20101001
  9. ASPIRIN LYSINE [Concomitant]
     Route: 048
  10. PIOGLITAZONE HYDROCHLORIDE [Concomitant]
     Indication: TYPE 2 DIABETES MELLITUS
     Route: 048
     Dates: start: 20100301, end: 20100810
  11. PERINDOPRIL ERBUMINE [Suspect]
     Indication: HYPERTENSION
     Route: 048
     Dates: start: 20090618
  12. JANUMET [Suspect]
     Route: 048
     Dates: start: 20100101
  13. TRIMETAZIDINE HYDROCHLORIDE [Suspect]
     Indication: CORONARY ARTERY DISEASE
     Route: 048
     Dates: start: 20090417, end: 20101118
  14. NITROGLYCERIN [Concomitant]
     Indication: CORONARY ARTERY DISEASE
     Route: 065

REACTIONS (4)
  - THROMBOSIS IN DEVICE [None]
  - VENTRICULAR HYPOKINESIA [None]
  - ATRIAL FIBRILLATION [None]
  - GLYCOSYLATED HAEMOGLOBIN INCREASED [None]
